FAERS Safety Report 7101495-5 (Version None)
Quarter: 2010Q4

REPORT INFORMATION
  Report Type: 
  Country: None (occurrence: None)
  Receive Date: 20101108
  Receipt Date: 20101027
  Transmission Date: 20110411
  Serious: Yes (Hospitalization, Other)
  Sender: FDA-Public Use
  Company Number: AXC-2010-000280

PATIENT
  Age: 71 Year
  Sex: Female

DRUGS (4)
  1. MESALAMINE [Suspect]
     Indication: COLITIS ULCERATIVE
     Dosage: 1500 MG, QD
  2. PREDNISOLONE [Suspect]
     Indication: COLITIS ULCERATIVE
     Dosage: 5 MG, QD
  3. CEFOTIAM [Suspect]
     Indication: OSTEOMYELITIS
     Dates: start: 20090101, end: 20090101
  4. LEVOFLOXACIN [Suspect]
     Indication: OSTEOMYELITIS
     Dates: start: 20090101

REACTIONS (15)
  - ABDOMINAL DISTENSION [None]
  - ABDOMINAL SYMPTOM [None]
  - BACK PAIN [None]
  - C-REACTIVE PROTEIN INCREASED [None]
  - COLITIS ULCERATIVE [None]
  - COLONOSCOPY ABNORMAL [None]
  - CONDITION AGGRAVATED [None]
  - HAEMATOCHEZIA [None]
  - LUMBAR SPINAL STENOSIS [None]
  - MUCOSAL INFLAMMATION [None]
  - OSTEOMYELITIS ACUTE [None]
  - POST PROCEDURAL INFECTION [None]
  - PSEUDOMEMBRANOUS COLITIS [None]
  - SEPSIS [None]
  - SUPERINFECTION [None]
